FAERS Safety Report 14187137 (Version 5)
Quarter: 2018Q1

REPORT INFORMATION
  Report Type: Report from Study
  Country: RU (occurrence: RU)
  Receive Date: 20171114
  Receipt Date: 20180130
  Transmission Date: 20180508
  Serious: Yes (Hospitalization, Other)
  Sender: FDA-Public Use
  Company Number: RU-TAKEDA-2017TEU004766

PATIENT
  Age: 31 Year
  Sex: Male
  Weight: 91.4 kg

DRUGS (8)
  1. CURANTIL [Concomitant]
     Active Substance: DIPYRIDAMOLE
     Indication: THROMBOSIS PROPHYLAXIS
     Dosage: 75 MG, TID
     Route: 048
     Dates: start: 2004
  2. IXAZOMIB [Suspect]
     Active Substance: IXAZOMIB
     Indication: LUPUS NEPHRITIS
     Dosage: UNK UNK, 1/WEEK
     Route: 048
     Dates: start: 20170724, end: 20171002
  3. BISOPROLOL [Concomitant]
     Active Substance: BISOPROLOL
     Indication: HYPERTENSION
     Dosage: 5 MG, QD
     Route: 048
     Dates: start: 2005
  4. OMEPRAZOLE. [Concomitant]
     Active Substance: OMEPRAZOLE
     Indication: PROPHYLAXIS
     Dosage: 20 MG, QD
     Route: 048
     Dates: start: 2004
  5. ACCUPRO [Concomitant]
     Active Substance: QUINAPRIL HYDROCHLORIDE
     Indication: HYPERTENSION
     Dosage: 10 MG, QD
     Route: 048
     Dates: start: 2005
  6. CALCEMIN ADVANCE [Concomitant]
     Active Substance: CALCIUM CARBONATE\MAGNESIUM OXIDE\PREVITAMIN D3\SODIUM BORATE\ZINC OXIDE
     Indication: OSTEOPOROSIS PROPHYLAXIS
     Dosage: 500 MG, BID
     Route: 048
     Dates: start: 2004
  7. PREDNISOLONE. [Concomitant]
     Active Substance: PREDNISOLONE
     Indication: SYSTEMIC LUPUS ERYTHEMATOSUS
     Dosage: 10 MG, QD
     Route: 048
     Dates: start: 2012
  8. PLAQUENIL                          /00072602/ [Concomitant]
     Active Substance: HYDROXYCHLOROQUINE DIPHOSPHATE
     Indication: SYSTEMIC LUPUS ERYTHEMATOSUS
     Dosage: 200 MG, QD
     Route: 048
     Dates: start: 2004

REACTIONS (1)
  - Deep vein thrombosis [Recovered/Resolved with Sequelae]

NARRATIVE: CASE EVENT DATE: 20171106
